FAERS Safety Report 9125252 (Version 3)
Quarter: 2014Q3

REPORT INFORMATION
  Report Type: Spontaneous
  Country: US (occurrence: US)
  Receive Date: 20130227
  Receipt Date: 20140811
  Transmission Date: 20150326
  Serious: Yes (Hospitalization)
  Sender: FDA-Public Use
  Company Number: US-B.I. PHARMACEUTICALS,INC./RIDGEFIELD-2013-BI-04853BP

PATIENT
  Age: 61 Year
  Sex: Female
  Weight: 97.52 kg

DRUGS (16)
  1. ZYRTEC [Concomitant]
     Active Substance: CETIRIZINE HYDROCHLORIDE
     Route: 065
  2. MULTIVITAMIN [Concomitant]
     Active Substance: VITAMINS
     Route: 065
  3. PRADAXA [Suspect]
     Active Substance: DABIGATRAN ETEXILATE MESYLATE
     Dosage: 150 MG
     Route: 048
     Dates: start: 20130102, end: 20130214
  4. PRADAXA [Suspect]
     Active Substance: DABIGATRAN ETEXILATE MESYLATE
     Dosage: 300 MG
     Route: 048
     Dates: start: 20121217, end: 20130101
  5. MAXAIR [Concomitant]
     Active Substance: PIRBUTEROL ACETATE
     Route: 065
  6. PRAVACHOL [Concomitant]
     Active Substance: PRAVASTATIN SODIUM
     Route: 065
  7. COZAAR [Concomitant]
     Active Substance: LOSARTAN POTASSIUM
     Route: 065
  8. MULTAQ [Concomitant]
     Active Substance: DRONEDARONE
     Indication: ATRIAL FIBRILLATION
     Route: 065
     Dates: start: 201105, end: 201302
  9. PREVACID [Concomitant]
     Active Substance: LANSOPRAZOLE
     Route: 065
  10. BIOTIN [Concomitant]
     Active Substance: BIOTIN
     Route: 065
  11. CARDIZEM [Concomitant]
     Active Substance: DILTIAZEM HYDROCHLORIDE
     Route: 065
  12. PRADAXA [Suspect]
     Active Substance: DABIGATRAN ETEXILATE MESYLATE
     Indication: ATRIAL FIBRILLATION
     Dosage: 300 MG
     Route: 048
     Dates: start: 20130215
  13. LOVAZA [Concomitant]
     Active Substance: OMEGA-3-ACID ETHYL ESTERS
     Route: 065
  14. FLEXERIL [Concomitant]
     Active Substance: CYCLOBENZAPRINE HYDROCHLORIDE
     Route: 065
  15. CALCIUM [Concomitant]
     Active Substance: CALCIUM
     Route: 065
  16. FLAXSEED [Concomitant]
     Active Substance: FLAX SEED
     Route: 065

REACTIONS (4)
  - Haematuria [Unknown]
  - Flatulence [Not Recovered/Not Resolved]
  - Eructation [Not Recovered/Not Resolved]
  - Cardiac ablation [Recovered/Resolved]

NARRATIVE: CASE EVENT DATE: 201301
